FAERS Safety Report 23648582 (Version 1)
Quarter: 2024Q1

REPORT INFORMATION
  Report Type: Spontaneous
  Country: ES (occurrence: ES)
  Receive Date: 20240319
  Receipt Date: 20240319
  Transmission Date: 20240410
  Serious: Yes (Life-Threatening, Hospitalization)
  Sender: FDA-Public Use
  Company Number: None

PATIENT
  Age: 47 Year
  Sex: Female
  Weight: 57.2 kg

DRUGS (2)
  1. ELTROMBOPAG OLAMINE [Suspect]
     Active Substance: ELTROMBOPAG OLAMINE
     Indication: Immune thrombocytopenia
     Dosage: 25 MG, Q48H, (COMPRIMIDOS RECUBIERTOS CON PELICULA, 28 COMPRIMIDOS)
     Route: 048
     Dates: start: 20230526, end: 20240226
  2. TRYPTIZOL [Concomitant]
     Active Substance: AMITRIPTYLINE HYDROCHLORIDE
     Indication: Headache
     Dosage: 10 MG, QD, ( COMPRIMIDOS RECUBIERTOS CON PELICULA, 24 COMPRIMIDOS)
     Route: 048
     Dates: start: 20230918

REACTIONS (1)
  - Acute myocardial infarction [Recovering/Resolving]

NARRATIVE: CASE EVENT DATE: 20240226
